FAERS Safety Report 8820702 (Version 2)
Quarter: 2012Q4

REPORT INFORMATION
  Report Type: 
  Country: US (occurrence: US)
  Receive Date: 20121002
  Receipt Date: 20121114
  Transmission Date: 20130627
  Serious: Yes (Disabling, Other)
  Sender: FDA-Public Use
  Company Number: PHEH2012US016958

PATIENT
  Age: 53 Year
  Sex: Female

DRUGS (4)
  1. GILENYA [Suspect]
     Indication: MULTIPLE SCLEROSIS
     Dosage: 0.5 mg, QD
     Route: 048
     Dates: start: 20120801, end: 20120818
  2. TYLENOL [Concomitant]
     Indication: PAIN
     Dosage: UNK UKN, PRN
     Route: 048
  3. NORCO [Concomitant]
     Indication: PAIN
     Dosage: UNK UKN, PRN
     Route: 048
  4. CYMBALTA [Concomitant]
     Indication: PAIN
     Dosage: 30 mg, BID

REACTIONS (6)
  - Gait disturbance [Recovered/Resolved with Sequelae]
  - Fall [Recovered/Resolved with Sequelae]
  - Dysarthria [Recovered/Resolved with Sequelae]
  - Laceration [Recovered/Resolved with Sequelae]
  - Sinus bradycardia [Recovered/Resolved]
  - Malaise [Unknown]
